FAERS Safety Report 7474949-X (Version None)
Quarter: 2011Q2

REPORT INFORMATION
  Report Type: 
  Country: None (occurrence: None)
  Receive Date: 20110505
  Receipt Date: 20110412
  Transmission Date: 20111010
  Serious: Yes (Hospitalization)
  Sender: FDA-Public Use
  Company Number: TOR 2011-0021

PATIENT
  Age: 69 Year
  Sex: Female

DRUGS (1)
  1. TOREMIFENE (TOREMIFENE) [Suspect]
     Indication: BREAST CANCER
     Dosage: 40 MG/DAY

REACTIONS (1)
  - ENDOMETRIAL SARCOMA [None]
